FAERS Safety Report 7330889-8 (Version None)
Quarter: 2011Q1

REPORT INFORMATION
  Report Type: 
  Country: None (occurrence: None)
  Receive Date: 20110225
  Receipt Date: 20110225
  Transmission Date: 20110831
  Serious: Yes (Hospitalization)
  Sender: FDA-Public Use
  Company Number: None

PATIENT
  Sex: Female
  Weight: 48.1 kg

DRUGS (6)
  1. METHOTREXATE [Suspect]
     Dosage: 60 MG
     Dates: end: 20110215
  2. PEG-L-ASPARAGINASE (PEGASPARGASE, ONCOSPAR) [Suspect]
     Dosage: 3825 IU
     Dates: end: 20110209
  3. CYTARABINE [Suspect]
     Dosage: 920 MG
     Dates: end: 20110204
  4. MERCAPTOPURINE [Suspect]
     Dosage: 1300 MG
     Dates: end: 20110207
  5. VINCRISTINE SULFATE [Suspect]
     Dosage: 4 MG
     Dates: end: 20110215
  6. CYCLOPHOSPHAMIDE [Suspect]
     Dosage: 1530 MG
     Dates: end: 20110125

REACTIONS (25)
  - FEBRILE NEUTROPENIA [None]
  - MOVEMENT DISORDER [None]
  - AMNESIA [None]
  - CONFUSIONAL STATE [None]
  - ATHETOSIS [None]
  - MUSCULAR WEAKNESS [None]
  - NEUROTOXICITY [None]
  - INCOHERENT [None]
  - DYSARTHRIA [None]
  - ANXIETY [None]
  - NUCLEAR MAGNETIC RESONANCE IMAGING BRAIN ABNORMAL [None]
  - CHILLS [None]
  - ABNORMAL BEHAVIOUR [None]
  - PROCEDURAL COMPLICATION [None]
  - GAIT DISTURBANCE [None]
  - DIARRHOEA [None]
  - ENCEPHALITIS VIRAL [None]
  - REPETITIVE SPEECH [None]
  - RESPIRATORY DISORDER [None]
  - NAUSEA [None]
  - MENTAL STATUS CHANGES [None]
  - ABDOMINAL PAIN [None]
  - HEADACHE [None]
  - APHASIA [None]
  - SENSORY DISTURBANCE [None]
